FAERS Safety Report 7057163 (Version 43)
Quarter: 2013Q2

REPORT INFORMATION
  Report Type: Report from Study
  Country: CA (occurrence: CA)
  Receive Date: 20090722
  Receipt Date: 20130613
  Transmission Date: 20140414
  Serious: Yes (Hospitalization, Other)
  Sender: FDA-Public Use
  Company Number: PHMT2006CA01252

PATIENT
  Age: 54 Year
  Sex: Male

DRUGS (16)
  1. SANDOSTATIN LAR [Suspect]
     Indication: CARCINOID TUMOUR
     Dosage: 50 MG, QMO
     Route: 030
     Dates: start: 20050202
  2. SANDOSTATIN LAR [Suspect]
     Dosage: 60 MG, UNK
  3. SANDOSTATIN LAR [Suspect]
     Dosage: 30 MG, UNK
     Route: 030
     Dates: end: 20091201
  4. SANDOSTATIN LAR [Suspect]
     Dosage: 50 MG, QMO
     Route: 030
  5. SANDOSTATIN LAR [Suspect]
     Dosage: 50 MG, EVERY 4 WEEKS
     Route: 030
  6. FENTANYL CITRATE [Concomitant]
     Route: 062
  7. INDAPAMIDE [Concomitant]
  8. LOSEC                                   /CAN/ [Concomitant]
  9. METOPROLOL [Concomitant]
  10. NITRO [Concomitant]
     Route: 062
  11. REMERON [Concomitant]
  12. TIAZAC [Concomitant]
  13. METHADONE [Concomitant]
  14. CRESTOR [Concomitant]
  15. COLACE [Concomitant]
  16. SENOKOT [Concomitant]

REACTIONS (85)
  - Circulatory collapse [Unknown]
  - Chest pain [Not Recovered/Not Resolved]
  - Palpitations [Unknown]
  - Syncope [Unknown]
  - Somnolence [Unknown]
  - Hallucination [Unknown]
  - Liver abscess [Unknown]
  - Renal impairment [Unknown]
  - Dyspnoea [Unknown]
  - Heart rate decreased [Unknown]
  - Abdominal pain [Unknown]
  - Cerebrovascular accident [Unknown]
  - Hemiparesis [Unknown]
  - Balance disorder [Unknown]
  - Gait disturbance [Unknown]
  - Headache [Unknown]
  - Dyskinesia [Unknown]
  - Loss of consciousness [Unknown]
  - Arteriosclerosis [Unknown]
  - Weight decreased [Unknown]
  - Fall [Unknown]
  - Aphonia [Unknown]
  - Blood pressure increased [Unknown]
  - Blood pressure diastolic decreased [Unknown]
  - Fatigue [Unknown]
  - Cholecystitis [Unknown]
  - Gallbladder pain [Unknown]
  - Bradycardia [Unknown]
  - Malignant neoplasm progression [Unknown]
  - Neoplasm progression [Unknown]
  - Heart rate irregular [Unknown]
  - Hypotension [Unknown]
  - Yellow skin [Unknown]
  - Ocular icterus [Unknown]
  - Gastrooesophageal reflux disease [Unknown]
  - Hiatus hernia [Unknown]
  - Flushing [Unknown]
  - Wheezing [Unknown]
  - Injection site reaction [Unknown]
  - Injection site mass [Recovered/Resolved]
  - Pain [Not Recovered/Not Resolved]
  - Injection site bruising [Unknown]
  - Pain in extremity [Unknown]
  - Arthralgia [Unknown]
  - Oedema peripheral [Not Recovered/Not Resolved]
  - Stress [Unknown]
  - Anxiety [Unknown]
  - Genital swelling [Unknown]
  - Contusion [Unknown]
  - Terminal dribbling [Unknown]
  - Heat oedema [Unknown]
  - Dysuria [Unknown]
  - Fluid retention [Unknown]
  - Mouth ulceration [Unknown]
  - Penis disorder [Unknown]
  - Cellulitis [Recovering/Resolving]
  - Gout [Unknown]
  - Swelling [Unknown]
  - Back pain [Recovered/Resolved]
  - Injury [Unknown]
  - Buccal mucosal roughening [Unknown]
  - Musculoskeletal pain [Unknown]
  - Hyperhidrosis [Unknown]
  - Dry mouth [Unknown]
  - Paraesthesia [Unknown]
  - Skin exfoliation [Unknown]
  - Inflammation [Unknown]
  - Hypoaesthesia [Unknown]
  - Feeling hot [Unknown]
  - Sciatic nerve injury [Unknown]
  - Neuralgia [Unknown]
  - Calcification of muscle [Unknown]
  - Asthenia [Unknown]
  - Nausea [Recovered/Resolved]
  - Dizziness [Unknown]
  - Vomiting [Not Recovered/Not Resolved]
  - Diarrhoea [Recovered/Resolved]
  - Urticaria [Unknown]
  - Rash pruritic [Unknown]
  - Skin irritation [Unknown]
  - Abdominal distension [Unknown]
  - Abdominal discomfort [Unknown]
  - Abdominal pain upper [Unknown]
  - Injection site pain [Unknown]
  - Flank pain [Unknown]
